FAERS Safety Report 23664665 (Version 2)
Quarter: 2024Q2

REPORT INFORMATION
  Report Type: Spontaneous
  Country: CA (occurrence: CA)
  Receive Date: 20240322
  Receipt Date: 20240401
  Transmission Date: 20240716
  Serious: No
  Sender: FDA-Public Use
  Company Number: CA-PFIZER INC-202400069047

PATIENT
  Age: 50 Year
  Sex: Female

DRUGS (5)
  1. ABRILADA [Suspect]
     Active Substance: ADALIMUMAB-AFZB
     Indication: Psoriatic arthropathy
     Dosage: 40 MG EVERY OTHER WEEK, PREFILLED PEN
     Route: 058
     Dates: start: 20231129
  2. ABRILADA [Suspect]
     Active Substance: ADALIMUMAB-AFZB
     Dosage: 40 MG EVERY OTHER WEEK, PREFILLED PEN
     Route: 058
     Dates: start: 202403
  3. DIAZEPAM [Concomitant]
     Active Substance: DIAZEPAM
     Dosage: 1 DF
  4. LITHIUM [Concomitant]
     Active Substance: LITHIUM
     Dosage: 1 DF
  5. METHOTREXATE [Concomitant]
     Active Substance: METHOTREXATE
     Dosage: 1 DF, DOSAGE INFO: UNKNOWN
     Route: 065

REACTIONS (2)
  - Breast cyst [Unknown]
  - Breast mass [Unknown]

NARRATIVE: CASE EVENT DATE: 20240301
